FAERS Safety Report 21207842 (Version 1)
Quarter: 2022Q3

REPORT INFORMATION
  Report Type: Spontaneous
  Country: US (occurrence: US)
  Receive Date: 20220812
  Receipt Date: 20220812
  Transmission Date: 20221027
  Serious: No
  Sender: FDA-Public Use
  Company Number: US-JNJFOC-20220812579

PATIENT
  Age: 6 Decade
  Sex: Male

DRUGS (1)
  1. ERLEADA [Suspect]
     Active Substance: APALUTAMIDE
     Indication: Product used for unknown indication
     Dosage: 60 MG TAB TAKE 4 TABLETS BY MOUTH ONCE DAILY AS DIRECTED
     Route: 048
     Dates: start: 20210723

REACTIONS (1)
  - Radiotherapy [Unknown]
